FAERS Safety Report 13376687 (Version 1)
Quarter: 2017Q1

REPORT INFORMATION
  Report Type: Spontaneous
  Country: JP (occurrence: JP)
  Receive Date: 20170328
  Receipt Date: 20170328
  Transmission Date: 20170429
  Serious: Yes (Hospitalization)
  Sender: FDA-Public Use
  Company Number: JP-ESPERO PHARMACEUTICALS-ESP201703-000066

PATIENT
  Age: 28 Year
  Sex: Female
  Weight: 67 kg

DRUGS (10)
  1. NITROGLYCERIN. [Suspect]
     Active Substance: NITROGLYCERIN
  2. FENTANYL. [Concomitant]
     Active Substance: FENTANYL
  3. METHYLDOPA. [Concomitant]
     Active Substance: METHYLDOPA
  4. BUPIVACAINE. [Concomitant]
     Active Substance: BUPIVACAINE
  5. MAGNESIUM SULFATE. [Concomitant]
     Active Substance: MAGNESIUM SULFATE
  6. PHENYLEPHRINE [Concomitant]
     Active Substance: PHENYLEPHRINE\PHENYLEPHRINE HYDROCHLORIDE
  7. ROPIVACAINE [Concomitant]
     Active Substance: ROPIVACAINE
  8. ATROPINE. [Concomitant]
     Active Substance: ATROPINE
  9. EPHEDRINE. [Concomitant]
     Active Substance: EPHEDRINE
  10. NITROGLYCERIN. [Suspect]
     Active Substance: NITROGLYCERIN
     Indication: UTERINE ATONY

REACTIONS (4)
  - Bradycardia [Recovered/Resolved]
  - Syncope [Recovered/Resolved]
  - Cardiac arrest [Recovered/Resolved]
  - Loss of consciousness [Recovered/Resolved]
